FAERS Safety Report 5397063-6 (Version None)
Quarter: 2007Q3

REPORT INFORMATION
  Report Type: 
  Country: None (occurrence: None)
  Receive Date: 20070723
  Receipt Date: 20070424
  Transmission Date: 20080115
  Serious: Yes (Hospitalization)
  Sender: FDA-Public Use
  Company Number: JPI-P-001121

PATIENT
  Age: 19 Year
  Sex: Female
  Weight: 41.7309 kg

DRUGS (19)
  1. XYREM [Suspect]
     Indication: CHRONIC FATIGUE SYNDROME
     Dosage: SEE IMAGE
     Route: 048
     Dates: start: 20070101, end: 20070101
  2. XYREM [Suspect]
     Indication: FIBROMYALGIA
     Dosage: SEE IMAGE
     Route: 048
     Dates: start: 20070101, end: 20070101
  3. XYREM [Suspect]
     Indication: INSOMNIA
     Dosage: SEE IMAGE
     Route: 048
     Dates: start: 20070101, end: 20070101
  4. XYREM [Suspect]
     Indication: CHRONIC FATIGUE SYNDROME
     Dosage: SEE IMAGE
     Route: 048
     Dates: start: 20070101, end: 20070101
  5. XYREM [Suspect]
     Indication: FIBROMYALGIA
     Dosage: SEE IMAGE
     Route: 048
     Dates: start: 20070101, end: 20070101
  6. XYREM [Suspect]
     Indication: INSOMNIA
     Dosage: SEE IMAGE
     Route: 048
     Dates: start: 20070101, end: 20070101
  7. XYREM [Suspect]
     Indication: CHRONIC FATIGUE SYNDROME
     Dosage: SEE IMAGE
     Route: 048
     Dates: end: 20070422
  8. XYREM [Suspect]
     Indication: FIBROMYALGIA
     Dosage: SEE IMAGE
     Route: 048
     Dates: end: 20070422
  9. XYREM [Suspect]
     Indication: INSOMNIA
     Dosage: SEE IMAGE
     Route: 048
     Dates: end: 20070422
  10. XYREM [Suspect]
     Indication: CHRONIC FATIGUE SYNDROME
     Dosage: SEE IMAGE
     Route: 048
     Dates: start: 20060101
  11. XYREM [Suspect]
     Indication: FIBROMYALGIA
     Dosage: SEE IMAGE
     Route: 048
     Dates: start: 20060101
  12. XYREM [Suspect]
     Indication: INSOMNIA
     Dosage: SEE IMAGE
     Route: 048
     Dates: start: 20060101
  13. XYREM [Suspect]
     Indication: CHRONIC FATIGUE SYNDROME
     Dosage: SEE IMAGE
     Route: 048
     Dates: start: 20070210
  14. XYREM [Suspect]
     Indication: FIBROMYALGIA
     Dosage: SEE IMAGE
     Route: 048
     Dates: start: 20070210
  15. XYREM [Suspect]
     Indication: INSOMNIA
     Dosage: SEE IMAGE
     Route: 048
     Dates: start: 20070210
  16. INNOPRAN XL (PROPRANOLOL HYDROCHLORIDE) [Concomitant]
  17. REGLAN [Concomitant]
  18. ROZEREM [Concomitant]
  19. ATIVAN [Concomitant]

REACTIONS (1)
  - COMPLEX REGIONAL PAIN SYNDROME [None]
